FAERS Safety Report 8591378-6 (Version None)
Quarter: 2012Q3

REPORT INFORMATION
  Report Type: 
  Country: None (occurrence: None)
  Receive Date: 20120803
  Receipt Date: 20120803
  Transmission Date: 20120928
  Serious: Yes (Other)
  Sender: FDA-Public Use
  Company Number: None

PATIENT
  Age: 65 Year
  Sex: Female

DRUGS (1)
  1. LUMIGAN [Suspect]
     Indication: VISUAL IMPAIRMENT
     Dosage: DROP IN EACH EYE ONCE DAILY
     Dates: start: 20120701, end: 20120801

REACTIONS (2)
  - ERYTHEMA OF EYELID [None]
  - ERYTHEMA [None]
